FAERS Safety Report 18618864 (Version 1)
Quarter: 2020Q4

REPORT INFORMATION
  Report Type: Spontaneous
  Country: HR (occurrence: HR)
  Receive Date: 20201215
  Receipt Date: 20201215
  Transmission Date: 20210114
  Serious: Yes (Other)
  Sender: FDA-Public Use
  Company Number: NVSC2020HR326624

PATIENT
  Age: 62 Year
  Sex: Male

DRUGS (1)
  1. HEPARIN [Suspect]
     Active Substance: HEPARIN SODIUM
     Indication: ANTICOAGULANT THERAPY
     Dosage: UNK
     Route: 042
     Dates: start: 20201016, end: 20201119

REACTIONS (5)
  - Fibrin D dimer increased [Recovering/Resolving]
  - Abdominal pain [Recovered/Resolved]
  - Heparin-induced thrombocytopenia test positive [Recovering/Resolving]
  - Thrombocytopenia [Recovering/Resolving]
  - Heparin-induced thrombocytopenia [Recovering/Resolving]

NARRATIVE: CASE EVENT DATE: 20201118
